FAERS Safety Report 7560608-1 (Version None)
Quarter: 2011Q2

REPORT INFORMATION
  Report Type: 
  Country: None (occurrence: None)
  Receive Date: 20110621
  Receipt Date: 20100419
  Transmission Date: 20111010
  Serious: No
  Sender: FDA-Public Use
  Company Number: US-ASTRAZENECA-2009SE28073

PATIENT
  Age: 80 Year
  Sex: Male
  Weight: 73.5 kg

DRUGS (18)
  1. VITAMIN B [Concomitant]
  2. PROBIOTICS [Concomitant]
  3. ENTOCORT EC [Suspect]
     Indication: CROHN'S DISEASE
     Dosage: WENT FROM 3 TO 2 TO 1 DAILY
     Route: 048
     Dates: start: 20081228, end: 20091113
  4. COUMADIN [Concomitant]
  5. WARFARIN SODIUM [Concomitant]
  6. OMEPRAZOLE [Concomitant]
  7. FINASTERIDE [Concomitant]
  8. ENTOCORT EC [Suspect]
     Route: 048
     Dates: start: 20090101
  9. ATENOLOL [Concomitant]
  10. DIGESTIVE ENZYMES [Concomitant]
  11. RANITIDINE [Concomitant]
  12. ENTOCORT EC [Suspect]
     Dosage: PRESCRIBED TAKING 2 THEN ONE QOD
     Route: 048
  13. CLONAZEPAM [Concomitant]
  14. FOLIC ACID [Concomitant]
  15. VITAMIN D [Concomitant]
  16. COLACE [Concomitant]
  17. AMLODIPINE [Concomitant]
  18. LISINOPRIL [Concomitant]

REACTIONS (4)
  - PLATELET COUNT INCREASED [None]
  - DIARRHOEA [None]
  - CONSTIPATION [None]
  - FATIGUE [None]
